FAERS Safety Report 9540857 (Version 1)
Quarter: 2013Q3

REPORT INFORMATION
  Report Type: Spontaneous
  Country: MX (occurrence: MX)
  Receive Date: 20130920
  Receipt Date: 20130920
  Transmission Date: 20140515
  Serious: Yes (Other)
  Sender: FDA-Public Use
  Company Number: PHHY2013MX105079

PATIENT
  Age: 75 Year
  Sex: Female

DRUGS (3)
  1. EXFORGE [Suspect]
     Indication: HYPERTENSION
     Dosage: UNK (160/10), UNK
     Route: 048
  2. EXFORGE [Suspect]
     Dosage: 1 DF (160/10), DAILY
     Route: 048
  3. GALVUS [Suspect]
     Indication: DIABETES MELLITUS
     Dosage: UNK UKN, UNK
     Dates: start: 2012

REACTIONS (4)
  - Cerebrovascular accident [Unknown]
  - Speech disorder [Not Recovered/Not Resolved]
  - Blood pressure inadequately controlled [Unknown]
  - Depression [Not Recovered/Not Resolved]
